FAERS Safety Report 8093011-9 (Version None)
Quarter: 2012Q1

REPORT INFORMATION
  Report Type: 
  Country: None (occurrence: None)
  Receive Date: 20120128
  Receipt Date: 20111014
  Transmission Date: 20120608
  Serious: Yes (Other)
  Sender: FDA-Public Use
  Company Number: US-ABBOTT-09P-163-0616950-00

PATIENT
  Sex: Female
  Weight: 127.12 kg

DRUGS (9)
  1. HUMIRA [Suspect]
     Indication: RHEUMATOID ARTHRITIS
     Route: 058
     Dates: start: 20081117
  2. LASIX [Concomitant]
     Indication: FLUID RETENTION
  3. VITAMIN D [Concomitant]
     Indication: PRODUCT USED FOR UNKNOWN INDICATION
  4. FOLIC ACID [Concomitant]
     Indication: PRODUCT USED FOR UNKNOWN INDICATION
  5. INHALER [Concomitant]
     Indication: ASTHMA
  6. METHOTREXATE [Concomitant]
     Indication: RHEUMATOID ARTHRITIS
  7. CAPTOPRIL [Concomitant]
     Indication: HYPERTENSION
  8. CENTRUM [Concomitant]
     Indication: PRODUCT USED FOR UNKNOWN INDICATION
  9. INHALER [Concomitant]
     Indication: BRONCHITIS

REACTIONS (2)
  - TENDON DISORDER [None]
  - JOINT SWELLING [None]
